FAERS Safety Report 10359288 (Version 1)
Quarter: 2014Q3

REPORT INFORMATION
  Report Type: Spontaneous
  Country: US (occurrence: None)
  Receive Date: 20140731
  Receipt Date: 20140731
  Transmission Date: 20150326
  Serious: Yes (Disabling)
  Sender: FDA-Public Use
  Company Number: None

PATIENT
  Age: 64 Year
  Sex: Male
  Weight: 90.72 kg

DRUGS (1)
  1. LEVOFLOXACIN 500MG [Suspect]
     Active Substance: LEVOFLOXACIN
     Indication: SINUSITIS
     Dosage: 10, ONCE DAILY, TAKEN BY MOUTH
     Route: 048

REACTIONS (10)
  - Pain in extremity [None]
  - Tendon pain [None]
  - Pain [None]
  - Nervousness [None]
  - Neck pain [None]
  - Tendon rupture [None]
  - Musculoskeletal pain [None]
  - Amnesia [None]
  - Neuralgia [None]
  - Insomnia [None]
